FAERS Safety Report 20155525 (Version 2)
Quarter: 2021Q4

REPORT INFORMATION
  Report Type: Spontaneous
  Country: US (occurrence: US)
  Receive Date: 20211207
  Receipt Date: 20211214
  Transmission Date: 20220303
  Serious: Yes (Other)
  Sender: FDA-Public Use
  Company Number: US-BAYER-2021A261224

PATIENT
  Age: 69 Year
  Sex: Male

DRUGS (11)
  1. ASPIRIN [Suspect]
     Active Substance: ASPIRIN
     Dosage: 81 MG, QD
  2. FOLIC ACID [Concomitant]
     Active Substance: FOLIC ACID
     Dosage: 1 MG, QD
  3. RANITIDINE [Concomitant]
     Active Substance: RANITIDINE
     Dosage: 300 MG NIGHTLY
  4. SENNOSIDES [Concomitant]
     Active Substance: SENNOSIDES
     Dosage: 2 DF, BID
  5. DOCUSATE SODIUM [Concomitant]
     Active Substance: DOCUSATE SODIUM
     Dosage: 2 DF, BID
  6. PANTOPRAZOLE SODIUM [Concomitant]
     Active Substance: PANTOPRAZOLE SODIUM
     Dosage: 40 MG, QD
  7. METOPROLOL SUCCINATE [Concomitant]
     Active Substance: METOPROLOL SUCCINATE
     Dosage: 12.5 MG, QD
  8. MELATONIN [Concomitant]
     Active Substance: MELATONIN
     Dosage: 5 MG NIGHTLY AS NEEDED
  9. MAGNESIUM HYDROXIDE [Concomitant]
     Active Substance: MAGNESIUM HYDROXIDE
     Dosage: 30 ML AS NEEDED
  10. ALUMINUM HYDROXIDE [Concomitant]
     Active Substance: ALUMINUM HYDROXIDE
     Dosage: 30 ML NEEDED
  11. SIMETHICONE (DIMETHICONE) [Concomitant]
     Active Substance: DIMETHICONE
     Dosage: 30 ML AS NEEDED

REACTIONS (3)
  - Procedural haemorrhage [None]
  - Post procedural haematoma [None]
  - Haemoglobin decreased [None]
